FAERS Safety Report 4429141-X (Version None)
Quarter: 2004Q3

REPORT INFORMATION
  Report Type: 
  Country: None (occurrence: None)
  Receive Date: 20040726
  Receipt Date: 20040311
  Transmission Date: 20050211
  Serious: No
  Sender: FDA-Public Use
  Company Number: USA040361642

PATIENT
  Age: 71 Year
  Sex: Female
  Weight: 52 kg

DRUGS (4)
  1. FORTEO [Suspect]
     Indication: OSTEOPOROSIS
     Dosage: 20 UG/1 DAY
     Dates: start: 20040303
  2. VITAMIN NOS [Concomitant]
  3. FOSAMAX [Concomitant]
  4. GLUCOSAMINE CHONDROITIN [Concomitant]

REACTIONS (1)
  - WEIGHT INCREASED [None]
